FAERS Safety Report 5187581-8 (Version None)
Quarter: 2006Q4

REPORT INFORMATION
  Report Type: 
  Country: None (occurrence: None)
  Receive Date: 20061220
  Receipt Date: 20060103
  Transmission Date: 20070319
  Serious: No
  Sender: FDA-Public Use
  Company Number: US-AMGEN-US163471

PATIENT
  Sex: Male
  Weight: 84.9 kg

DRUGS (3)
  1. ENBREL [Suspect]
     Indication: RHEUMATOID ARTHRITIS
     Route: 065
  2. PROSCAR [Concomitant]
     Dates: start: 20050801
  3. FLONASE [Concomitant]

REACTIONS (4)
  - CONDITION AGGRAVATED [None]
  - PROSTATE EXAMINATION ABNORMAL [None]
  - RHEUMATOID ARTHRITIS [None]
  - URINARY TRACT INFECTION STAPHYLOCOCCAL [None]
